FAERS Safety Report 22132565 (Version 2)
Quarter: 2023Q2

REPORT INFORMATION
  Report Type: Spontaneous
  Country: SG (occurrence: SG)
  Receive Date: 20230323
  Receipt Date: 20230406
  Transmission Date: 20230721
  Serious: No
  Sender: FDA-Public Use
  Company Number: SG-KOWA-23JP000347

PATIENT
  Sex: Female
  Weight: 67 kg

DRUGS (1)
  1. LIVALO [Suspect]
     Active Substance: PITAVASTATIN CALCIUM
     Indication: Low density lipoprotein increased
     Dosage: 4 MG, QD
     Route: 048
     Dates: start: 20230116, end: 20230201

REACTIONS (2)
  - Alopecia [Recovering/Resolving]
  - Alopecia [Recovering/Resolving]

NARRATIVE: CASE EVENT DATE: 20230116
